FAERS Safety Report 4656321-0 (Version None)
Quarter: 2005Q2

REPORT INFORMATION
  Report Type: 
  Country: None (occurrence: None)
  Receive Date: 20050509
  Receipt Date: 20050421
  Transmission Date: 20051028
  Serious: Yes (Other)
  Sender: FDA-Public Use
  Company Number: JP-JNJFOC-20050102263

PATIENT
  Sex: Male

DRUGS (5)
  1. ITRIZOLE [Suspect]
     Route: 049
     Dates: start: 20040928, end: 20050103
  2. ITRIZOLE [Suspect]
     Indication: ANTIFUNGAL PROPHYLAXIS
     Route: 049
     Dates: start: 20040928, end: 20050103
  3. ISEPAMICIN SULFATE [Concomitant]
     Indication: INFECTION PARASITIC
     Route: 065
  4. ISEPAMICIN SULFATE [Concomitant]
     Indication: INFECTION
     Route: 065
  5. POTASSIUM CITRATE [Concomitant]
     Route: 049

REACTIONS (3)
  - DEAFNESS [None]
  - HERPES SIMPLEX [None]
  - TINNITUS [None]
